FAERS Safety Report 8327712-1 (Version None)
Quarter: 2012Q2

REPORT INFORMATION
  Report Type: 
  Country: None (occurrence: None)
  Receive Date: 20120502
  Receipt Date: 20120430
  Transmission Date: 20120825
  Serious: No
  Sender: FDA-Public Use
  Company Number: US-PFIZER INC-2012106819

PATIENT
  Sex: Female
  Weight: 71.202 kg

DRUGS (3)
  1. CHANTIX [Suspect]
     Dosage: UNK
     Route: 048
     Dates: start: 20120401
  2. LIPITOR [Concomitant]
     Indication: BLOOD CHOLESTEROL INCREASED
     Dosage: 20 MG, 3X/WEEK (AT BED TIME)
     Route: 048
  3. CHANTIX [Suspect]
     Indication: SMOKING CESSATION THERAPY
     Dosage: 0.5 MG, DAILY
     Route: 048
     Dates: start: 20120401, end: 20120401

REACTIONS (5)
  - CONSTIPATION [None]
  - HYPOPHAGIA [None]
  - NAUSEA [None]
  - DIZZINESS [None]
  - FEELING ABNORMAL [None]
